FAERS Safety Report 26040730 (Version 1)
Quarter: 2025Q4

REPORT INFORMATION
  Report Type: Spontaneous
  Country: EU (occurrence: EU)
  Receive Date: 20251113
  Receipt Date: 20251113
  Transmission Date: 20260118
  Serious: Yes (Other)
  Sender: OCTAPHARMA
  Company Number: EU-OCTA-2025001012

PATIENT
  Age: 71 Year
  Sex: Female

DRUGS (1)
  1. OCTAPLAS LG [Suspect]
     Active Substance: PLASMA PROTEIN FRACTION (HUMAN)
     Indication: Coagulation factor deficiency
     Route: 042
     Dates: start: 20251006, end: 20251006

REACTIONS (5)
  - Restlessness [Recovered/Resolved]
  - Dyspnoea [Recovered/Resolved]
  - Wheezing [Recovered/Resolved]
  - Stridor [Recovered/Resolved]
  - Transfusion-related circulatory overload [Recovered/Resolved]

NARRATIVE: CASE EVENT DATE: 20251006
